FAERS Safety Report 9287978 (Version 1)
Quarter: 2013Q2

REPORT INFORMATION
  Report Type: Spontaneous
  Country: JP (occurrence: JP)
  Receive Date: 20130514
  Receipt Date: 20130514
  Transmission Date: 20140414
  Serious: Yes (Other)
  Sender: FDA-Public Use
  Company Number: JP-BRISTOL-MYERS SQUIBB COMPANY-18896696

PATIENT
  Sex: 0

DRUGS (1)
  1. ERBITUX SOLN FOR INF 5MG/ML [Suspect]
     Route: 041

REACTIONS (1)
  - Cerebral infarction [Unknown]
